FAERS Safety Report 6008203-X (Version None)
Quarter: 2008Q4

REPORT INFORMATION
  Report Type: 
  Country: None (occurrence: None)
  Receive Date: 20081217
  Receipt Date: 20080723
  Transmission Date: 20090506
  Serious: No
  Sender: FDA-Public Use
  Company Number: US-ASTRAZENECA-2008UW15341

PATIENT
  Age: 67 Year
  Sex: Female
  Weight: 52.2 kg

DRUGS (4)
  1. CRESTOR [Suspect]
     Route: 048
     Dates: start: 20080101
  2. SYNTHROID [Concomitant]
  3. PAXIL [Concomitant]
  4. NORVASC [Concomitant]

REACTIONS (3)
  - ANGIOPATHY [None]
  - SKIN ATROPHY [None]
  - SKIN FRAGILITY [None]
